FAERS Safety Report 7969269-0 (Version None)
Quarter: 2011Q4

REPORT INFORMATION
  Report Type: 
  Country: None (occurrence: None)
  Receive Date: 20111209
  Receipt Date: 20111205
  Transmission Date: 20120403
  Serious: Yes (Other)
  Sender: FDA-Public Use
  Company Number: DE-ROCHE-694018

PATIENT
  Sex: Male
  Weight: 96 kg

DRUGS (4)
  1. IRINOTECAN HCL [Suspect]
     Indication: COLON CANCER
     Route: 042
     Dates: start: 20100224, end: 20100224
  2. FLUOROURACIL [Suspect]
     Indication: COLON CANCER
     Dosage: 800 MG GIVEN AS BOLUS, 4800 MG GIVEN OVER 48 HOURS
     Route: 042
     Dates: start: 20100224, end: 20100226
  3. LEUCOVORIN CALCIUM [Suspect]
     Indication: COLON CANCER
     Route: 042
     Dates: start: 20100224, end: 20100224
  4. AVASTIN [Suspect]
     Indication: COLON CANCER
     Route: 042
     Dates: start: 20100224, end: 20100224

REACTIONS (1)
  - AUTOIMMUNE THROMBOCYTOPENIA [None]
